FAERS Safety Report 25286942 (Version 1)
Quarter: 2025Q2

REPORT INFORMATION
  Report Type: Spontaneous
  Country: JP (occurrence: JP)
  Receive Date: 20250509
  Receipt Date: 20250509
  Transmission Date: 20250716
  Serious: Yes (Hospitalization, Other)
  Sender: JEROME STEVENS
  Company Number: JP-Jerome Stevens Pharmaceuticals, Inc.-2176436

PATIENT
  Age: 76 Year
  Sex: Male

DRUGS (3)
  1. DIGOXIN [Suspect]
     Active Substance: DIGOXIN
  2. FUROSEMIDE [Concomitant]
     Active Substance: FUROSEMIDE
  3. SPIRONOLACTONE [Concomitant]
     Active Substance: SPIRONOLACTONE

REACTIONS (3)
  - Toxicity to various agents [Recovered/Resolved]
  - Road traffic accident [Unknown]
  - Xanthopsia [Recovered/Resolved]
